FAERS Safety Report 19064869 (Version 2)
Quarter: 2021Q1

REPORT INFORMATION
  Report Type: Spontaneous
  Country: US (occurrence: US)
  Receive Date: 20210326
  Receipt Date: 20210331
  Transmission Date: 20210420
  Serious: Yes (Hospitalization, Other)
  Sender: FDA-Public Use
  Company Number: US-BRISTOL-MYERS SQUIBB COMPANY-BMS-2021-026692

PATIENT
  Age: 64 Year
  Sex: Female

DRUGS (5)
  1. ORENCIA [Suspect]
     Active Substance: ABATACEPT
     Indication: RHEUMATOID ARTHRITIS
     Dosage: UNK, QM
     Route: 065
  2. DUPILUMAB [Interacting]
     Active Substance: DUPILUMAB
     Dosage: 300 MILLIGRAM, QWK
     Route: 065
     Dates: start: 20190325
  3. PLAQUENIL [HYDROXYCHLOROQUINE PHOSPHATE] [Concomitant]
     Active Substance: HYDROXYCHLOROQUINE DIPHOSPHATE
     Indication: PRODUCT USED FOR UNKNOWN INDICATION
     Route: 065
  4. DUPILUMAB [Interacting]
     Active Substance: DUPILUMAB
     Indication: ASTHMA
     Dosage: 600 MILLIGRAM, 1X
     Route: 058
     Dates: start: 20190311, end: 20190311
  5. METHOTREXATE. [Concomitant]
     Active Substance: METHOTREXATE
     Indication: PRODUCT USED FOR UNKNOWN INDICATION
     Dosage: UNK
     Route: 065

REACTIONS (17)
  - Pneumonia [Recovered/Resolved]
  - Dehydration [Unknown]
  - Therapeutic response unexpected [Not Recovered/Not Resolved]
  - Injection site bruising [Unknown]
  - Pulmonary oedema [Unknown]
  - Cardiovascular insufficiency [Unknown]
  - Pulmonary hypertension [Unknown]
  - Dizziness [Unknown]
  - Asthma [Not Recovered/Not Resolved]
  - Blood pressure increased [Unknown]
  - Drug interaction [Unknown]
  - Blood lactic acid increased [Not Recovered/Not Resolved]
  - Urinary tract infection [Unknown]
  - Rheumatoid arthritis [Recovering/Resolving]
  - Respiratory tract infection [Unknown]
  - Cardiac flutter [Unknown]
  - Cold sweat [Unknown]

NARRATIVE: CASE EVENT DATE: 2019
